FAERS Safety Report 8142667-0 (Version None)
Quarter: 2012Q1

REPORT INFORMATION
  Report Type: 
  Country: None (occurrence: None)
  Receive Date: 20120216
  Receipt Date: 20120214
  Transmission Date: 20120608
  Serious: Yes (Other)
  Sender: FDA-Public Use
  Company Number: US-PFIZER INC-2012040390

PATIENT
  Sex: Male
  Weight: 87.982 kg

DRUGS (5)
  1. XANAX [Suspect]
     Indication: ANXIETY
     Dosage: 0.5 MG, UNK
     Route: 048
  2. HYDROCODONE [Concomitant]
     Indication: ARTHRALGIA
  3. HYDROCODONE [Concomitant]
     Indication: PAIN IN EXTREMITY
  4. XANAX [Suspect]
     Dosage: 1 MG, 2X/DAY
     Route: 048
     Dates: end: 20111201
  5. HYDROCODONE [Concomitant]
     Indication: BACK PAIN
     Dosage: 10/60MG AS NEEDED

REACTIONS (4)
  - DIZZINESS [None]
  - PAIN [None]
  - ANXIETY [None]
  - FALL [None]
